FAERS Safety Report 11561399 (Version 1)
Quarter: 2015Q3

REPORT INFORMATION
  Report Type: Spontaneous
  Country: US (occurrence: US)
  Receive Date: 20150916
  Receipt Date: 20150916
  Transmission Date: 20151125
  Serious: No
  Sender: FDA-Public Use
  Company Number: US-ELI_LILLY_AND_COMPANY-US200810006770

PATIENT
  Age: 74 Year
  Sex: Male

DRUGS (3)
  1. ASACOL [Concomitant]
     Active Substance: MESALAMINE
  2. CODEINE SULFATE. [Concomitant]
     Active Substance: CODEINE SULFATE
     Dosage: UNK, AS NEEDED
  3. FORTEO [Suspect]
     Active Substance: TERIPARATIDE
     Dates: start: 20081023

REACTIONS (3)
  - Dyspepsia [Not Recovered/Not Resolved]
  - Malaise [Not Recovered/Not Resolved]
  - Abdominal pain [Not Recovered/Not Resolved]

NARRATIVE: CASE EVENT DATE: 20081024
